FAERS Safety Report 5959130-5 (Version None)
Quarter: 2008Q4

REPORT INFORMATION
  Report Type: 
  Country: None (occurrence: None)
  Receive Date: 20081120
  Receipt Date: 20080204
  Transmission Date: 20090506
  Serious: No
  Sender: FDA-Public Use
  Company Number: A0707188A

PATIENT
  Age: 55 Year
  Sex: Male

DRUGS (3)
  1. WELLBUTRIN SR [Suspect]
     Indication: DEPRESSION
     Dosage: 400MG TWICE PER DAY
     Route: 048
     Dates: start: 19990101
  2. WELLBUTRIN SR [Suspect]
     Route: 048
  3. NO CONCURRENT MEDICATION [Concomitant]

REACTIONS (2)
  - DRUG INEFFECTIVE [None]
  - THERAPEUTIC RESPONSE DECREASED [None]
